FAERS Safety Report 11158166 (Version 1)
Quarter: 2015Q2

REPORT INFORMATION
  Report Type: Spontaneous
  Country: US (occurrence: None)
  Receive Date: 20150514
  Receipt Date: 20150514
  Transmission Date: 20150821
  Serious: Yes (Death)
  Sender: FDA-Public Use
  Company Number: 2015010067

PATIENT
  Age: 34 Year
  Sex: Female

DRUGS (12)
  1. HYDROCODONE W/ACETAMINOPHEN (HYDROCODONE, ACETAMINOPHEN) [Suspect]
     Active Substance: ACETAMINOPHEN\HYDROCODONE BITARTRATE
  2. ONDANSETRON. [Suspect]
     Active Substance: ONDANSETRON
  3. LIOTHYRONINE (LIOTHYRONINE) [Suspect]
     Active Substance: LIOTHYRONINE
  4. GABAPENTIN (GABAPENTIN) [Suspect]
     Active Substance: GABAPENTIN
  5. ZOLPIDEM (ZOLPIDEM) [Suspect]
     Active Substance: ZOLPIDEM TARTRATE
  6. ESCITALOPRAM [Suspect]
     Active Substance: ESCITALOPRAM OXALATE
  7. LINACLOTIDE (LINACLOTIDE) [Suspect]
     Active Substance: LINACLOTIDE
  8. DICLOFENAC (DICLOFENAC) [Suspect]
     Active Substance: DICLOFENAC SODIUM
  9. AMITRIPTYLINE (AMITRIPTYLINE) [Suspect]
     Active Substance: AMITRIPTYLINE
  10. TRAMADOL (TRAMADOL) [Suspect]
     Active Substance: TRAMADOL
  11. LUBIPROSTONE (LUBIPROSTONE) [Suspect]
     Active Substance: LUBIPROSTONE
  12. SERTRALINE [Suspect]
     Active Substance: SERTRALINE HYDROCHLORIDE

REACTIONS (2)
  - Cardio-respiratory arrest [None]
  - Completed suicide [None]

NARRATIVE: CASE EVENT DATE: 2013
